FAERS Safety Report 4749291-8 (Version None)
Quarter: 2005Q3

REPORT INFORMATION
  Report Type: 
  Country: None (occurrence: None)
  Receive Date: 20050812
  Receipt Date: 20050518
  Transmission Date: 20060218
  Serious: Yes (Other)
  Sender: FDA-Public Use
  Company Number: 405259

PATIENT
  Age: 42 Year
  Sex: Female
  Weight: 90.7 kg

DRUGS (10)
  1. PEGASYS [Suspect]
     Indication: HEPATITIS C
     Dosage: 1 PER WEEK SUBCUTANEOUS
     Route: 058
     Dates: start: 20050110, end: 20050512
  2. COPEGUS [Suspect]
     Indication: HEPATITIS C
     Dosage: 1200 MG DAILY ORAL
     Route: 048
     Dates: start: 20050110, end: 20050512
  3. KALETRA [Concomitant]
  4. VALTREX [Concomitant]
  5. PRILOSEC [Concomitant]
  6. WELLBUTRIN [Concomitant]
  7. LORTAB [Concomitant]
  8. TRUVADA (EMTRICITABINE/TENOFOVIR) [Concomitant]
  9. TRILEPTAL [Concomitant]
  10. VITAMIN (VITAMIN NOS) [Concomitant]

REACTIONS (4)
  - CHEST PAIN [None]
  - HAEMATEMESIS [None]
  - NAUSEA [None]
  - PAIN IN EXTREMITY [None]
